FAERS Safety Report 8460686-1 (Version None)
Quarter: 2012Q2

REPORT INFORMATION
  Report Type: 
  Country: None (occurrence: None)
  Receive Date: 20120622
  Receipt Date: 20120618
  Transmission Date: 20120825
  Serious: Yes (Life-Threatening, Hospitalization, Other)
  Sender: FDA-Public Use
  Company Number: US-ABBOTT-12P-163-0948003-00

PATIENT
  Sex: Male
  Weight: 97 kg

DRUGS (8)
  1. RITONAVIR [Suspect]
     Indication: HIV INFECTION
     Route: 048
     Dates: start: 20020606
  2. ALBUTEROL [Concomitant]
     Indication: PRODUCT USED FOR UNKNOWN INDICATION
     Dates: start: 20030301
  3. CLOBETASOL PROPIONATE [Concomitant]
     Indication: PRODUCT USED FOR UNKNOWN INDICATION
     Dates: start: 20000101
  4. VIREAD [Concomitant]
     Indication: HIV INFECTION
     Route: 048
     Dates: start: 20090416
  5. VIAGRA [Concomitant]
     Indication: PRODUCT USED FOR UNKNOWN INDICATION
     Dates: start: 20101201
  6. PREZISTA [Concomitant]
     Indication: PRODUCT USED FOR UNKNOWN INDICATION
     Dates: start: 20090416
  7. ELVITEGRAVIR [Concomitant]
     Indication: HIV INFECTION
     Route: 048
     Dates: start: 20090416
  8. HYDROCODONE BITARTRATE + ACETAMINOPHEN [Concomitant]
     Indication: PRODUCT USED FOR UNKNOWN INDICATION
     Dates: start: 20111116

REACTIONS (1)
  - ACUTE MYOCARDIAL INFARCTION [None]
